FAERS Safety Report 6963989-2 (Version None)
Quarter: 2010Q3

REPORT INFORMATION
  Report Type: 
  Country: None (occurrence: None)
  Receive Date: 20100902
  Receipt Date: 20100902
  Transmission Date: 20110219
  Serious: Yes (Death)
  Sender: FDA-Public Use
  Company Number: None

PATIENT
  Sex: Male
  Weight: 83.4619 kg

DRUGS (1)
  1. QUALAQUIN [Suspect]
     Indication: MUSCLE SPASMS
     Dosage: 1 NIGHTLY PO
     Route: 048
     Dates: start: 20070717, end: 20070806

REACTIONS (1)
  - THROMBOTIC THROMBOCYTOPENIC PURPURA [None]
